FAERS Safety Report 6243553-3 (Version None)
Quarter: 2009Q2

REPORT INFORMATION
  Report Type: 
  Country: None (occurrence: None)
  Receive Date: 20090622
  Receipt Date: 20090616
  Transmission Date: 20091009
  Serious: Yes (Death, Hospitalization)
  Sender: FDA-Public Use
  Company Number: 2009SP009282

PATIENT
  Age: 75 Year
  Sex: Male
  Weight: 70 kg

DRUGS (15)
  1. TEMODAL [Suspect]
     Indication: GLIOBLASTOMA
     Dosage: 180 MG;AD;PO; 180 MG;QD; 220 MG;QD; 220 MG;QD
     Route: 048
     Dates: start: 20090303, end: 20090309
  2. TEMODAL [Suspect]
     Indication: GLIOBLASTOMA
     Dosage: 180 MG;AD;PO; 180 MG;QD; 220 MG;QD; 220 MG;QD
     Route: 048
     Dates: start: 20090317, end: 20090323
  3. TEMODAL [Suspect]
     Indication: GLIOBLASTOMA
     Dosage: 180 MG;AD;PO; 180 MG;QD; 220 MG;QD; 220 MG;QD
     Route: 048
     Dates: start: 20090331, end: 20090406
  4. TEMODAL [Suspect]
     Indication: GLIOBLASTOMA
     Dosage: 180 MG;AD;PO; 180 MG;QD; 220 MG;QD; 220 MG;QD
     Route: 048
     Dates: start: 20090414, end: 20090420
  5. DIOVAN (CON.) [Concomitant]
  6. NORVASC (CON.) [Concomitant]
  7. ALNA (CON.) [Concomitant]
  8. TOREM (CON.) [Concomitant]
  9. DILATREND (CON.) [Concomitant]
  10. MELNEURIN (CON.) [Concomitant]
  11. REMERGIL (CON.) [Concomitant]
  12. KEPPRA (CON.) [Concomitant]
  13. GRANISETRON (CON.) [Concomitant]
  14. PANTOZOL (CON.) [Concomitant]
  15. PRAVASTATIN (CON.) [Concomitant]

REACTIONS (9)
  - APHASIA [None]
  - CARDIAC FAILURE [None]
  - GLIOBLASTOMA [None]
  - MALIGNANT NEOPLASM PROGRESSION [None]
  - MULTI-ORGAN FAILURE [None]
  - PNEUMONIA [None]
  - PYREXIA [None]
  - RENAL FAILURE [None]
  - SEPSIS [None]
